FAERS Safety Report 14427318 (Version 1)
Quarter: 2018Q1

REPORT INFORMATION
  Report Type: Spontaneous
  Country: US (occurrence: US)
  Receive Date: 20180123
  Receipt Date: 20180123
  Transmission Date: 20180509
  Serious: No
  Sender: FDA-Public Use
  Company Number: US-IMPAX LABORATORIES, INC-2017-IPXL-03267

PATIENT
  Age: 58 Year
  Sex: Female
  Weight: 90 kg

DRUGS (3)
  1. RYTARY [Suspect]
     Active Substance: CARBIDOPA\LEVODOPA
     Dosage: 23.75MG/95MG 2 CAPSULES EVERY 3 HOURS
     Route: 048
     Dates: start: 2017, end: 2017
  2. RYTARY [Suspect]
     Active Substance: CARBIDOPA\LEVODOPA
     Dosage: 23.75/95 MG, 8-10 CAPSULES EVERY PER DAY
     Route: 048
     Dates: start: 2017
  3. RYTARY [Suspect]
     Active Substance: CARBIDOPA\LEVODOPA
     Indication: PARKINSON^S DISEASE
     Dosage: 23.75/95MG 1 CAPSULES, UNK
     Route: 048
     Dates: start: 2017, end: 2017

REACTIONS (5)
  - Therapeutic response shortened [Unknown]
  - Dizziness [Recovered/Resolved]
  - Drug effect delayed [Recovered/Resolved]
  - Headache [Recovered/Resolved]
  - Eye pain [Recovered/Resolved]

NARRATIVE: CASE EVENT DATE: 2017
